FAERS Safety Report 10396657 (Version 1)
Quarter: 2014Q3

REPORT INFORMATION
  Report Type: Report from Study
  Country: US (occurrence: US)
  Receive Date: 20140820
  Receipt Date: 20140820
  Transmission Date: 20150326
  Serious: Yes (Hospitalization)
  Sender: FDA-Public Use
  Company Number: US-MERCK-1408USA009587

PATIENT

DRUGS (4)
  1. PEGINTRON [Suspect]
     Active Substance: PEGINTERFERON ALFA-2B
     Indication: NEUROFIBROMATOSIS
  2. PEGINTRON [Suspect]
     Active Substance: PEGINTERFERON ALFA-2B
     Indication: NEUROFIBROMA
     Dosage: 1 MG/KG, QW
     Route: 058
  3. CELECOXIB. [Suspect]
     Active Substance: CELECOXIB
     Indication: NEUROFIBROMATOSIS
  4. CELECOXIB. [Suspect]
     Active Substance: CELECOXIB
     Indication: NEUROFIBROMA
     Dosage: TOTAL DAILY DOSE: 10 MG/KG/ DAY
     Route: 048

REACTIONS (2)
  - Depression [Unknown]
  - Off label use [Unknown]
